FAERS Safety Report 6656779-1 (Version None)
Quarter: 2010Q1

REPORT INFORMATION
  Report Type: 
  Country: None (occurrence: None)
  Receive Date: 20100329
  Receipt Date: 20100112
  Transmission Date: 20100710
  Serious: Yes (Hospitalization)
  Sender: FDA-Public Use
  Company Number: PHHY2010TW17502

PATIENT

DRUGS (1)
  1. EXJADE [Suspect]
     Dosage: 14 TABLETS
     Route: 048

REACTIONS (2)
  - HYDRONEPHROSIS [None]
  - PLEURAL EFFUSION [None]
